FAERS Safety Report 19497089 (Version 1)
Quarter: 2021Q3

REPORT INFORMATION
  Report Type: Spontaneous
  Country: US (occurrence: US)
  Receive Date: 20210706
  Receipt Date: 20210706
  Transmission Date: 20211014
  Serious: Yes (Other)
  Sender: FDA-Public Use
  Company Number: None

PATIENT
  Age: 61 Year
  Sex: Male
  Weight: 94.5 kg

DRUGS (1)
  1. CHANTIX [Suspect]
     Active Substance: VARENICLINE TARTRATE
     Indication: SMOKING CESSATION THERAPY
     Dosage: ?          QUANTITY:1 TABLET(S);?
     Route: 048
     Dates: start: 20210315, end: 20210515

REACTIONS (6)
  - Musculoskeletal stiffness [None]
  - Fall [None]
  - Balance disorder [None]
  - Memory impairment [None]
  - Speech disorder [None]
  - Asthenia [None]

NARRATIVE: CASE EVENT DATE: 20210315
